FAERS Safety Report 6303827-4 (Version None)
Quarter: 2009Q3

REPORT INFORMATION
  Report Type: 
  Country: None (occurrence: None)
  Receive Date: 20090807
  Receipt Date: 20090807
  Transmission Date: 20100115
  Serious: Yes (Other)
  Sender: FDA-Public Use
  Company Number: None

PATIENT
  Sex: Male
  Weight: 72.1219 kg

DRUGS (2)
  1. ARICEPT [Suspect]
     Indication: COGNITIVE DISORDER
     Dosage: TWO 5 MG DONEPEZIL TABLETS DAILY (10 MG TOTAL)
     Dates: start: 20090409, end: 20090723
  2. PLACEBO [Suspect]

REACTIONS (5)
  - ECONOMIC PROBLEM [None]
  - LACRIMATION INCREASED [None]
  - MOOD ALTERED [None]
  - SUICIDAL IDEATION [None]
  - TREATMENT NONCOMPLIANCE [None]
